FAERS Safety Report 7352102-8 (Version None)
Quarter: 2011Q1

REPORT INFORMATION
  Report Type: 
  Country: None (occurrence: None)
  Receive Date: 20110309
  Receipt Date: 20110309
  Transmission Date: 20110831
  Serious: Yes (Hospitalization)
  Sender: FDA-Public Use
  Company Number: None

PATIENT
  Sex: Male
  Weight: 101.15 kg

DRUGS (7)
  1. VINBLASTINE SULFATE [Suspect]
     Dosage: 14 MG
  2. EMEND [Concomitant]
  3. LORAZEPAM [Concomitant]
  4. BLEOMYCIN [Suspect]
     Dosage: 23 UNIT
  5. DOXORUBICIN HCL [Suspect]
     Dosage: 57 MG
  6. CLONAZEPAM [Concomitant]
  7. DACARBAZINE [Suspect]
     Dosage: 855 MG

REACTIONS (3)
  - ABNORMAL BEHAVIOUR [None]
  - ADJUSTMENT DISORDER [None]
  - SUICIDAL IDEATION [None]
